FAERS Safety Report 18974979 (Version 3)
Quarter: 2021Q1

REPORT INFORMATION
  Report Type: Report from Study
  Country: GB (occurrence: GB)
  Receive Date: 20210306
  Receipt Date: 20210324
  Transmission Date: 20210420
  Serious: Yes (Hospitalization)
  Sender: FDA-Public Use
  Company Number: GB-TEVA-2021-GB-1884423

PATIENT
  Age: 84 Year
  Sex: Female

DRUGS (15)
  1. DEXAMETHASONE. [Suspect]
     Active Substance: DEXAMETHASONE
     Indication: PLASMA CELL MYELOMA
     Dosage: 12 MILLIGRAM DAILY;
     Route: 048
     Dates: start: 20200917, end: 20200922
  2. DEXAMETHASONE. [Suspect]
     Active Substance: DEXAMETHASONE
     Dosage: 40 MILLIGRAM DAILY;
     Route: 048
     Dates: start: 20201111, end: 20201119
  3. DEXAMETHASONE. [Suspect]
     Active Substance: DEXAMETHASONE
     Dosage: 20 MILLIGRAM DAILY;
     Route: 048
     Dates: start: 20200928, end: 20201002
  4. REVLIMID [Suspect]
     Active Substance: LENALIDOMIDE
     Dosage: 25 MILLIGRAM DAILY;
     Route: 048
     Dates: start: 20201023, end: 20201025
  5. DEXAMETHASONE. [Suspect]
     Active Substance: DEXAMETHASONE
     Dosage: 8 MILLIGRAM DAILY;
     Route: 048
     Dates: start: 20200923, end: 20200924
  6. DEXAMETHASONE. [Suspect]
     Active Substance: DEXAMETHASONE
     Dosage: 4 MILLIGRAM DAILY;
     Route: 048
     Dates: start: 20201003, end: 20201005
  7. DEXAMETHASONE. [Suspect]
     Active Substance: DEXAMETHASONE
     Dosage: 40 MILLIGRAM DAILY;
     Route: 048
     Dates: start: 20201023, end: 20201023
  8. DEXAMETHASONE. [Suspect]
     Active Substance: DEXAMETHASONE
     Dosage: 6 MILLIGRAM DAILY;
     Route: 048
     Dates: start: 20200927, end: 20200927
  9. REVLIMID [Suspect]
     Active Substance: LENALIDOMIDE
     Indication: PLASMA CELL MYELOMA
     Dosage: 25 MILLIGRAM DAILY;
     Route: 048
     Dates: start: 20201111, end: 20201118
  10. DEXAMETHASONE. [Suspect]
     Active Substance: DEXAMETHASONE
     Dosage: 20 MILLIGRAM DAILY;
     Route: 048
     Dates: start: 20200926, end: 20200926
  11. DEXAMETHASONE. [Suspect]
     Active Substance: DEXAMETHASONE
     Dosage: 6 MILLIGRAM DAILY;
     Route: 048
     Dates: start: 20200925, end: 20200925
  12. REVLIMID [Suspect]
     Active Substance: LENALIDOMIDE
     Dosage: 25 MILLIGRAM DAILY;
     Route: 048
     Dates: start: 20200918, end: 20201008
  13. DEXAMETHASONE. [Suspect]
     Active Substance: DEXAMETHASONE
     Dosage: 2 MILLIGRAM DAILY;
     Route: 048
     Dates: start: 20201006, end: 20201008
  14. DEXAMETHASONE. [Suspect]
     Active Substance: DEXAMETHASONE
     Dosage: 16 MILLIGRAM DAILY;
     Route: 048
     Dates: start: 20200910, end: 20200916
  15. REVLIMID [Suspect]
     Active Substance: LENALIDOMIDE
     Dosage: 25 MILLIGRAM DAILY;
     Route: 048
     Dates: start: 20201031, end: 20201102

REACTIONS (1)
  - Pyrexia [Recovered/Resolved]

NARRATIVE: CASE EVENT DATE: 20201013
